FAERS Safety Report 4703700-9 (Version None)
Quarter: 2005Q2

REPORT INFORMATION
  Report Type: 
  Country: None (occurrence: None)
  Receive Date: 20050630
  Receipt Date: 20050621
  Transmission Date: 20051028
  Serious: Yes (Hospitalization, Other)
  Sender: FDA-Public Use
  Company Number: JP-BRISTOL-MYERS SQUIBB COMPANY-13012992

PATIENT
  Age: 77 Year
  Sex: Female

DRUGS (9)
  1. MAXIPIME [Suspect]
     Indication: PNEUMONIA
     Route: 042
     Dates: start: 20050616, end: 20050618
  2. SENNOSIDE [Concomitant]
     Route: 048
  3. POLARAMINE [Concomitant]
     Route: 048
  4. ASPIRIN [Concomitant]
     Route: 048
  5. ARTIST [Concomitant]
     Route: 048
  6. ATARAX [Concomitant]
     Dosage: ALSO 25 MG /DAY ORALLY
     Route: 048
  7. NITOROL [Concomitant]
     Route: 048
  8. NICORANDIL [Concomitant]
     Route: 048
  9. CALSAN [Concomitant]
     Route: 048

REACTIONS (2)
  - APHASIA [None]
  - DEPRESSED LEVEL OF CONSCIOUSNESS [None]
